FAERS Safety Report 23069454 (Version 1)
Quarter: 2023Q4

REPORT INFORMATION
  Report Type: Spontaneous
  Country: CL (occurrence: CL)
  Receive Date: 20231016
  Receipt Date: 20231016
  Transmission Date: 20240109
  Serious: Yes (Other)
  Sender: FDA-Public Use
  Company Number: CL-PFIZER INC-202200823030

PATIENT
  Age: 65 Year
  Sex: Female

DRUGS (3)
  1. SUTENT [Suspect]
     Active Substance: SUNITINIB MALATE
     Indication: Renal cancer
     Dosage: 50 MG
     Dates: start: 20210315, end: 202203
  2. SUTENT [Suspect]
     Active Substance: SUNITINIB MALATE
     Dosage: 37.5 MG, CYCLIC (DAILY, 10 DAYS ON AND 10 DAYS OFF)
     Route: 048
     Dates: start: 202203
  3. XIGDUO XR [Concomitant]
     Active Substance: DAPAGLIFLOZIN PROPANEDIOL\METFORMIN HYDROCHLORIDE
     Dosage: UNK

REACTIONS (15)
  - Blood glucose increased [Unknown]
  - Blood insulin increased [Unknown]
  - Neoplasm progression [Unknown]
  - Weight decreased [Unknown]
  - Nausea [Unknown]
  - Vomiting [Unknown]
  - Diarrhoea [Not Recovered/Not Resolved]
  - Food intolerance [Unknown]
  - Anorectal disorder [Unknown]
  - Dry skin [Unknown]
  - Oedema peripheral [Unknown]
  - Face oedema [Unknown]
  - Tachycardia [Unknown]
  - Off label use [Unknown]
  - Product use issue [Unknown]
